FAERS Safety Report 10006227 (Version 4)
Quarter: 2014Q3

REPORT INFORMATION
  Report Type: Spontaneous
  Country: US (occurrence: US)
  Receive Date: 20140313
  Receipt Date: 20140701
  Transmission Date: 20150326
  Serious: Yes (Death, Hospitalization)
  Sender: FDA-Public Use
  Company Number: US-PFIZER INC-2014070618

PATIENT
  Age: 68 Year
  Sex: Male

DRUGS (1)
  1. XALKORI [Suspect]
     Active Substance: CRIZOTINIB
     Dosage: 250 MG, 2X/DAY (500 MG DAILY DOSE)
     Dates: start: 20131119

REACTIONS (4)
  - Hypotension [Unknown]
  - Pyrexia [Unknown]
  - Pulmonary oedema [Unknown]
  - Death [Fatal]

NARRATIVE: CASE EVENT DATE: 2014
